FAERS Safety Report 12072711 (Version 2)
Quarter: 2016Q1

REPORT INFORMATION
  Report Type: Spontaneous
  Country: US (occurrence: US)
  Receive Date: 20160212
  Receipt Date: 20160311
  Transmission Date: 20160526
  Serious: Yes (Hospitalization)
  Sender: FDA-Public Use
  Company Number: US-BEH-2016058512

PATIENT
  Sex: Female
  Weight: 72 kg

DRUGS (28)
  1. CARISOPRODOL. [Concomitant]
     Active Substance: CARISOPRODOL
  2. NEXIUM [Concomitant]
     Active Substance: ESOMEPRAZOLE MAGNESIUM
  3. HIZENTRA [Suspect]
     Active Substance: HUMAN IMMUNOGLOBULIN G
     Dosage: 13-APR-2011
     Route: 058
     Dates: start: 20110413
  4. TRAZODONE [Concomitant]
     Active Substance: TRAZODONE HYDROCHLORIDE
  5. VIACTIV [Concomitant]
     Active Substance: CALCIUM\VITAMIN D\VITAMIN K5
  6. VITAMIN B12 [Concomitant]
     Active Substance: CYANOCOBALAMIN
  7. FLAXSEED [Concomitant]
     Active Substance: FLAX SEED
  8. TRICOR [Concomitant]
     Active Substance: FENOFIBRATE
  9. HIZENTRA [Suspect]
     Active Substance: HUMAN IMMUNOGLOBULIN G
     Dosage: 4 GM 20 ML VIALS
  10. ASTELIN [Concomitant]
     Active Substance: AZELASTINE HYDROCHLORIDE
  11. MULTIVITAMINS [Concomitant]
     Active Substance: VITAMINS
  12. VITAMIN E [Concomitant]
     Active Substance: .ALPHA.-TOCOPHEROL
  13. METOPROLOL. [Concomitant]
     Active Substance: METOPROLOL
  14. ASPIRIN. [Concomitant]
     Active Substance: ASPIRIN
  15. HIZENTRA [Suspect]
     Active Substance: HUMAN IMMUNOGLOBULIN G
     Dosage: 4 GM 20 ML VIALS
     Route: 058
     Dates: start: 20110413
  16. METFORMIN [Concomitant]
     Active Substance: METFORMIN HYDROCHLORIDE
  17. ISOSORBIDE MN ER [Concomitant]
     Active Substance: ISOSORBIDE
  18. SYMBICORT [Concomitant]
     Active Substance: BUDESONIDE\FORMOTEROL FUMARATE DIHYDRATE
  19. EPIPEN [Concomitant]
     Active Substance: EPINEPHRINE
  20. OXYCODONE [Concomitant]
     Active Substance: OXYCODONE
  21. NITROGLYCERIN. [Concomitant]
     Active Substance: NITROGLYCERIN
  22. FUROSEMIDE. [Concomitant]
     Active Substance: FUROSEMIDE
  23. LISINOPRIL. [Concomitant]
     Active Substance: LISINOPRIL
  24. LIPITOR [Concomitant]
     Active Substance: ATORVASTATIN CALCIUM
  25. LYRICA [Concomitant]
     Active Substance: PREGABALIN
  26. TRAMADOL. [Concomitant]
     Active Substance: TRAMADOL
  27. SINGULAIR [Concomitant]
     Active Substance: MONTELUKAST SODIUM
  28. HIZENTRA [Suspect]
     Active Substance: HUMAN IMMUNOGLOBULIN G
     Indication: IMMUNODEFICIENCY COMMON VARIABLE
     Route: 058

REACTIONS (2)
  - Foot operation [Recovered/Resolved]
  - Foot deformity [Recovered/Resolved]
